FAERS Safety Report 23422399 (Version 1)
Quarter: 2024Q1

REPORT INFORMATION
  Report Type: Spontaneous
  Country: US (occurrence: US)
  Receive Date: 20240119
  Receipt Date: 20240119
  Transmission Date: 20240409
  Serious: Yes (Other)
  Sender: FDA-Public Use
  Company Number: US-BEIGENE-BGN-2024-000636

PATIENT

DRUGS (2)
  1. BRUKINSA [Suspect]
     Active Substance: ZANUBRUTINIB
     Indication: Lymphoplasmacytoid lymphoma/immunocytoma
     Dosage: UNK
     Dates: end: 20230112
  2. BRUKINSA [Suspect]
     Active Substance: ZANUBRUTINIB
     Indication: Marginal zone lymphoma

REACTIONS (3)
  - Disease progression [Unknown]
  - Hyperviscosity syndrome [Unknown]
  - Off label use [Unknown]

NARRATIVE: CASE EVENT DATE: 20230112
